FAERS Safety Report 22315677 (Version 1)
Quarter: 2023Q2

REPORT INFORMATION
  Report Type: Spontaneous
  Country: US (occurrence: US)
  Receive Date: 20230512
  Receipt Date: 20230512
  Transmission Date: 20230721
  Serious: No
  Sender: FDA-Public Use
  Company Number: US-BRISTOL-MYERS SQUIBB COMPANY-2023-063978

PATIENT
  Age: 36 Year
  Sex: Female

DRUGS (2)
  1. LUSPATERCEPT [Suspect]
     Active Substance: LUSPATERCEPT
     Indication: Thalassaemia beta
     Dosage: DOSE : 1 MG/KG
  2. LORATADINE [Concomitant]
     Active Substance: LORATADINE
     Indication: Product used for unknown indication

REACTIONS (1)
  - Bone pain [Recovering/Resolving]
